FAERS Safety Report 18186643 (Version 2)
Quarter: 2021Q1

REPORT INFORMATION
  Report Type: Report from Study
  Country: JP (occurrence: JP)
  Receive Date: 20200824
  Receipt Date: 20210302
  Transmission Date: 20210419
  Serious: No
  Sender: FDA-Public Use
  Company Number: JP-ASTRAZENECA-2020SF05269

PATIENT
  Age: 35 Year
  Sex: Male

DRUGS (2)
  1. TAGRISSO [Suspect]
     Active Substance: OSIMERTINIB
     Indication: NON-SMALL CELL LUNG CANCER
     Route: 048
     Dates: start: 20190806
  2. TAGRISSO [Suspect]
     Active Substance: OSIMERTINIB
     Indication: NON-SMALL CELL LUNG CANCER
     Route: 048
     Dates: start: 20190122, end: 20190719

REACTIONS (5)
  - Rash maculo-papular [Unknown]
  - Proctitis [Unknown]
  - Nasal inflammation [Unknown]
  - Stomatitis [Unknown]
  - Paronychia [Unknown]

NARRATIVE: CASE EVENT DATE: 20190319
